FAERS Safety Report 15663508 (Version 2)
Quarter: 2018Q4

REPORT INFORMATION
  Report Type: Spontaneous
  Country: CA (occurrence: CA)
  Receive Date: 20181128
  Receipt Date: 20181213
  Transmission Date: 20190205
  Serious: Yes (Other)
  Sender: FDA-Public Use
  Company Number: CA-ROCHE-2219104

PATIENT
  Age: 31 Year
  Sex: Female

DRUGS (4)
  1. XOLAIR [Suspect]
     Active Substance: OMALIZUMAB
     Indication: CHRONIC SPONTANEOUS URTICARIA
     Route: 058
     Dates: start: 20181115
  2. BILASTINE [Concomitant]
     Active Substance: BILASTINE
     Route: 065
  3. BILASTINE [Concomitant]
     Active Substance: BILASTINE
     Indication: PRODUCT USED FOR UNKNOWN INDICATION
     Route: 065
     Dates: start: 201802
  4. BILASTINE [Concomitant]
     Active Substance: BILASTINE
     Route: 065
     Dates: start: 20181115

REACTIONS (5)
  - Peripheral swelling [Recovering/Resolving]
  - Paraesthesia [Recovered/Resolved]
  - Anaphylactic reaction [Unknown]
  - Pruritus [Recovered/Resolved]
  - Rash [Unknown]

NARRATIVE: CASE EVENT DATE: 20181115
